FAERS Safety Report 7142115-3 (Version None)
Quarter: 2010Q4

REPORT INFORMATION
  Report Type: 
  Country: None (occurrence: None)
  Receive Date: 20101207
  Receipt Date: 20101203
  Transmission Date: 20110411
  Serious: No
  Sender: FDA-Public Use
  Company Number: US-B.I. PHARMACEUTICALS,INC./RIDGEFIELD-2010-BP-13741BP

PATIENT
  Sex: Male

DRUGS (5)
  1. SPIRIVA [Suspect]
     Indication: EMPHYSEMA
     Dosage: 18 MCG
     Route: 055
     Dates: start: 20100701
  2. COREG [Concomitant]
  3. ENALAPRIL [Concomitant]
  4. PRILOSEC [Concomitant]
  5. CRESTOR [Concomitant]

REACTIONS (4)
  - COUGH [None]
  - DYSPHONIA [None]
  - DYSPNOEA [None]
  - SPUTUM INCREASED [None]
